FAERS Safety Report 9473951 (Version 1)
Quarter: 2013Q3

REPORT INFORMATION
  Report Type: Spontaneous
  Country: US (occurrence: US)
  Receive Date: 20130823
  Receipt Date: 20130823
  Transmission Date: 20140515
  Serious: No
  Sender: FDA-Public Use
  Company Number: US-BRISTOL-MYERS SQUIBB COMPANY-17184953

PATIENT
  Age: 65 Year
  Sex: Male
  Weight: 69.39 kg

DRUGS (4)
  1. SPRYCEL [Suspect]
     Indication: CHRONIC MYELOID LEUKAEMIA
     Dosage: DOSE WAS DECREASED TO 80MG ON 01MAR2012.
     Dates: start: 20120201
  2. ATENOLOL [Concomitant]
  3. IODINE [Concomitant]
  4. VITAMIN D [Concomitant]

REACTIONS (2)
  - Epistaxis [Unknown]
  - Increased tendency to bruise [Unknown]
